FAERS Safety Report 8590397 (Version 3)
Quarter: 2012Q4

REPORT INFORMATION
  Report Type: 
  Country: IE (occurrence: IE)
  Receive Date: 20120601
  Receipt Date: 20120903
  Transmission Date: 20130627
  Serious: Yes (Disabling, Other)
  Sender: FDA-Public Use
  Company Number: PHFR2012IE002236

PATIENT
  Age: 66 Year
  Sex: Male

DRUGS (5)
  1. CLOZARIL [Suspect]
     Indication: PSYCHOTIC DISORDER
     Route: 048
     Dates: start: 20120301, end: 20120314
  2. ENTACAPONE [Concomitant]
  3. LORAZEPAM [Concomitant]
  4. SINEMET-PLUS [Concomitant]
  5. QUETIAPINE [Concomitant]

REACTIONS (6)
  - Mobility decreased [Recovered/Resolved]
  - General physical health deterioration [Recovered/Resolved]
  - Urinary incontinence [Recovered/Resolved]
  - Decreased appetite [Recovered/Resolved]
  - Irritability [Recovered/Resolved]
  - No therapeutic response [Unknown]
